FAERS Safety Report 24196613 (Version 2)
Quarter: 2024Q3

REPORT INFORMATION
  Report Type: Report from Study
  Country: US (occurrence: US)
  Receive Date: 20240810
  Receipt Date: 20240816
  Transmission Date: 20241017
  Serious: Yes (Hospitalization)
  Sender: GILEAD
  Company Number: US-GILEAD-2024-0680339

PATIENT
  Age: 74 Year
  Sex: Female
  Weight: 47.2 kg

DRUGS (1)
  1. SACITUZUMAB GOVITECAN-HZIY [Suspect]
     Active Substance: SACITUZUMAB GOVITECAN-HZIY
     Indication: Breast cancer metastatic
     Dosage: 10 MG/KG D1 + 8 OF  21D CYCLE
     Route: 065
     Dates: start: 20211215, end: 20240612

REACTIONS (6)
  - Hyponatraemia [Recovered/Resolved]
  - Tachycardia [Recovered/Resolved]
  - Pyrexia [Recovered/Resolved]
  - Infection [Recovered/Resolved]
  - Dyspnoea [Recovered/Resolved]
  - Pain [Recovered/Resolved]

NARRATIVE: CASE EVENT DATE: 20240703
